FAERS Safety Report 4315102-8 (Version None)
Quarter: 2004Q1

REPORT INFORMATION
  Report Type: 
  Country: None (occurrence: None)
  Receive Date: 20040309
  Receipt Date: 20040224
  Transmission Date: 20041129
  Serious: Yes (Death, Life-Threatening, Hospitalization)
  Sender: FDA-Public Use
  Company Number: EWC040238168

PATIENT
  Age: 79 Year
  Sex: Male

DRUGS (4)
  1. XIGRIS [Suspect]
     Indication: SEPSIS
     Dosage: 250 MG OTHER
     Dates: start: 20040202, end: 20040225
  2. AMIODARONE [Concomitant]
  3. LEVOPHED (NOREPINEPHRINE) [Suspect]
  4. PHENYLEPHRINE [Concomitant]

REACTIONS (5)
  - ACTIVATED PARTIAL THROMBOPLASTIN TIME PROLONGED [None]
  - GASTRIC HAEMORRHAGE [None]
  - HYPOVOLAEMIC SHOCK [None]
  - PHARYNGEAL HAEMORRHAGE [None]
  - PLATELET COUNT DECREASED [None]
